FAERS Safety Report 5499348-1 (Version None)
Quarter: 2007Q4

REPORT INFORMATION
  Report Type: 
  Country: None (occurrence: None)
  Receive Date: 20071026
  Receipt Date: 20071017
  Transmission Date: 20080405
  Serious: Yes (Other)
  Sender: FDA-Public Use
  Company Number: SG-ELI_LILLY_AND_COMPANY-SG200710002450

PATIENT
  Sex: Female

DRUGS (2)
  1. FORTEO [Suspect]
     Indication: COMPRESSION FRACTURE
     Dosage: UNK, UNKNOWN
     Route: 065
     Dates: start: 20060701
  2. CALCIUM [Concomitant]
     Dosage: UNK, UNKNOWN
     Route: 065

REACTIONS (2)
  - PLATELET COUNT DECREASED [None]
  - WHITE BLOOD CELL COUNT DECREASED [None]
